FAERS Safety Report 6124414-7 (Version None)
Quarter: 2009Q1

REPORT INFORMATION
  Report Type: 
  Country: None (occurrence: None)
  Receive Date: 20090317
  Receipt Date: 20090302
  Transmission Date: 20090719
  Serious: Yes (Other)
  Sender: FDA-Public Use
  Company Number: 2009SP000610

PATIENT
  Age: 68 Year
  Sex: Female
  Weight: 59.9 kg

DRUGS (16)
  1. XOPENEX [Suspect]
     Indication: CHRONIC OBSTRUCTIVE PULMONARY DISEASE
     Dosage: 1.25 MG/3ML; BID; INHALATION
     Route: 055
     Dates: start: 20080201, end: 20080401
  2. XOPENEX [Suspect]
     Indication: CHRONIC OBSTRUCTIVE PULMONARY DISEASE
     Dosage: 1.25 MG/3ML; BID; INHALATION
     Route: 055
     Dates: start: 20040101
  3. BROVANA [Concomitant]
  4. HYDROXYCHLOROQUINE [Concomitant]
  5. COMBIVENT /01033501/ [Concomitant]
  6. SPIRIVA [Concomitant]
  7. SIMVASTATIN [Concomitant]
  8. BONIVA [Concomitant]
  9. PREDNISONE [Concomitant]
  10. AMLODIPINE BESYLATE [Concomitant]
  11. MUCINEX [Concomitant]
  12. SINGULAIR [Concomitant]
  13. TYLENOL (CAPLET) [Concomitant]
  14. CITRACAL [Concomitant]
  15. ADVAIR HFA [Concomitant]
  16. ALBUTEROL [Concomitant]

REACTIONS (2)
  - DRUG INEFFECTIVE [None]
  - SARCOMA OF SKIN [None]
